FAERS Safety Report 9879688 (Version 1)
Quarter: 2014Q1

REPORT INFORMATION
  Report Type: Spontaneous
  Country: US (occurrence: US)
  Receive Date: 20140206
  Receipt Date: 20140206
  Transmission Date: 20141002
  Serious: Yes (Other)
  Sender: FDA-Public Use
  Company Number: US-BAXTER-2014BAX004857

PATIENT
  Age: 23 Year
  Sex: Female
  Weight: 109 kg

DRUGS (7)
  1. LACTATED RINGER^S INJECTION, USP [Suspect]
     Indication: DEHYDRATION
     Route: 042
  2. LIDOCAINE [Suspect]
     Indication: EPIDURAL ANAESTHESIA
     Route: 008
  3. EPINEPHRINE [Suspect]
     Indication: EPIDURAL ANAESTHESIA
     Dosage: 5 UG/ML
     Route: 008
  4. BUPIVACAINE [Suspect]
     Indication: EPIDURAL ANAESTHESIA
     Route: 008
  5. BUPIVACAINE [Suspect]
     Route: 065
  6. FENTANYL [Suspect]
     Indication: EPIDURAL ANAESTHESIA
     Dosage: 2 UG/ML
     Route: 008
  7. METOPROLOL [Suspect]
     Indication: ATRIAL FIBRILLATION
     Route: 042

REACTIONS (3)
  - Atrial fibrillation [Recovered/Resolved]
  - Exposure during pregnancy [Recovered/Resolved]
  - No adverse event [Recovered/Resolved]
